FAERS Safety Report 18615236 (Version 1)
Quarter: 2020Q4

REPORT INFORMATION
  Report Type: Spontaneous
  Country: US (occurrence: US)
  Receive Date: 20201214
  Receipt Date: 20201214
  Transmission Date: 20210114
  Serious: No
  Sender: FDA-Public Use
  Company Number: US-BRISTOL-MYERS SQUIBB COMPANY-BMS-2020-105901

PATIENT
  Age: 69 Year
  Sex: Female
  Weight: 55.33 kg

DRUGS (5)
  1. RESTORIL [Concomitant]
     Active Substance: TEMAZEPAM
     Indication: SLEEP DISORDER
     Dosage: UNK
     Route: 065
  2. ENDOCIN [Concomitant]
     Active Substance: AMIKACIN SULFATE
     Indication: PAIN
     Dosage: 100 MG AT BEDTIME
     Route: 065
  3. PREDNISONE. [Concomitant]
     Active Substance: PREDNISONE
     Indication: PRODUCT USED FOR UNKNOWN INDICATION
     Dosage: UNK, QD
     Route: 065
  4. BELSOMRA [Concomitant]
     Active Substance: SUVOREXANT
     Indication: SLEEP DISORDER
     Dosage: UNK
     Route: 065
  5. ORENCIA [Suspect]
     Active Substance: ABATACEPT
     Indication: ANKYLOSING SPONDYLITIS
     Dosage: UNK UNK, QWK
     Route: 058
     Dates: start: 202009

REACTIONS (6)
  - Product packaging issue [Unknown]
  - Intentional product use issue [Unknown]
  - Drug ineffective [Unknown]
  - Device leakage [Unknown]
  - Incorrect dose administered by device [Unknown]
  - Injury associated with device [Unknown]

NARRATIVE: CASE EVENT DATE: 20201209
